FAERS Safety Report 14987662 (Version 1)
Quarter: 2018Q2

REPORT INFORMATION
  Report Type: Spontaneous
  Country: US (occurrence: US)
  Receive Date: 20180608
  Receipt Date: 20180608
  Transmission Date: 20180711
  Serious: Yes (Hospitalization)
  Sender: FDA-Public Use
  Company Number: US-VIVIMED-2018SP004233

PATIENT

DRUGS (3)
  1. FAT EMULSION NOS [Suspect]
     Active Substance: EGG PHOSPHOLIPIDS\SAFFLOWER OIL\SOYBEAN OIL
     Indication: INTENTIONAL OVERDOSE
     Dosage: UNK
     Route: 042
  2. AMLODIPINE [Suspect]
     Active Substance: AMLODIPINE BESYLATE
     Indication: PRODUCT USED FOR UNKNOWN INDICATION
     Dosage: UNK, 30 TABLETS
     Route: 048
  3. CARVEDILOL. [Suspect]
     Active Substance: CARVEDILOL
     Indication: PRODUCT USED FOR UNKNOWN INDICATION
     Dosage: UNK, 130 TABLETS
     Route: 048

REACTIONS (11)
  - Intentional overdose [Recovered/Resolved]
  - Laboratory test abnormal [Unknown]
  - Marital problem [None]
  - Pancreatitis [Unknown]
  - Depressed level of consciousness [Recovered/Resolved]
  - Intentional overdose [None]
  - Unresponsive to stimuli [Recovered/Resolved]
  - Hyperlipidaemia [Unknown]
  - Laboratory test interference [None]
  - Acute respiratory distress syndrome [Unknown]
  - Hypotension [Recovered/Resolved]
